FAERS Safety Report 16424641 (Version 1)
Quarter: 2019Q2

REPORT INFORMATION
  Report Type: Spontaneous
  Country: FI (occurrence: FI)
  Receive Date: 20190613
  Receipt Date: 20190613
  Transmission Date: 20190711
  Serious: Yes (Other)
  Sender: FDA-Public Use
  Company Number: FI-AMGEN-FINSP2019093209

PATIENT
  Age: 46 Year
  Sex: Female

DRUGS (2)
  1. ENBREL [Suspect]
     Active Substance: ETANERCEPT
     Indication: PUSTULAR PSORIASIS
     Dosage: UNK
     Route: 065
  2. CLINDAMYCIN HCL [Suspect]
     Active Substance: CLINDAMYCIN HYDROCHLORIDE
     Indication: TOOTH INFECTION
     Dosage: UNK
     Route: 048

REACTIONS (1)
  - Acute generalised exanthematous pustulosis [Unknown]
